FAERS Safety Report 5613704-X (Version None)
Quarter: 2008Q1

REPORT INFORMATION
  Report Type: 
  Country: None (occurrence: None)
  Receive Date: 20080205
  Receipt Date: 20080128
  Transmission Date: 20080703
  Serious: Yes (Hospitalization, Disabling)
  Sender: FDA-Public Use
  Company Number: GB-JNJFOC-20080106645

PATIENT
  Age: 52 Year
  Sex: Male
  Weight: 79.8 kg

DRUGS (10)
  1. REMICADE [Suspect]
  2. REMICADE [Suspect]
  3. REMICADE [Suspect]
     Indication: BEHCET'S SYNDROME
  4. ALLOPURINOL [Concomitant]
  5. ASPIRIN [Concomitant]
  6. ATENOLOL [Concomitant]
  7. BEZALIP MONO [Concomitant]
  8. CODEINE PHOSPHATE [Concomitant]
  9. ISTIN [Concomitant]
  10. URSO FALK [Concomitant]

REACTIONS (9)
  - DYSPNOEA [None]
  - ELECTROCARDIOGRAM CHANGE [None]
  - HYPERSENSITIVITY [None]
  - NAUSEA [None]
  - PARAESTHESIA ORAL [None]
  - SYNCOPE VASOVAGAL [None]
  - URTICARIA [None]
  - VOMITING [None]
  - WHEEZING [None]
